FAERS Safety Report 13101180 (Version 1)
Quarter: 2017Q1

REPORT INFORMATION
  Report Type: Spontaneous
  Country: CH (occurrence: FR)
  Receive Date: 20170110
  Receipt Date: 20170110
  Transmission Date: 20170428
  Serious: Yes (Other)
  Sender: FDA-Public Use
  Company Number: CH-LPDUSPRD-20170006

PATIENT
  Age: 91 Year
  Sex: Female

DRUGS (8)
  1. DOLIPRANE [Concomitant]
     Active Substance: ACETAMINOPHEN
     Dosage: UNKNOWN
  2. PREVISCAN [Concomitant]
     Active Substance: FLUINDIONE
     Dosage: UNKNOWN
  3. ACEBUTELOL [Concomitant]
     Dosage: UNKNOWN
  4. RABEPRAZOLE [Concomitant]
     Active Substance: RABEPRAZOLE
     Dosage: UNKNOWN
  5. APROVEL [Concomitant]
     Active Substance: IRBESARTAN
     Dosage: UNKNOWN
  6. FLUVASTATIN [Concomitant]
     Active Substance: FLUVASTATIN SODIUM
     Dosage: UNKNOWN
  7. VENOFER [Suspect]
     Active Substance: IRON SUCROSE
     Dosage: 300 MG, 1 IN 1 D
     Route: 042
     Dates: start: 20161128, end: 20161130
  8. BETAHISTINE [Concomitant]
     Active Substance: BETAHISTINE
     Dosage: UNKNOWN

REACTIONS (1)
  - Phlebitis [Unknown]

NARRATIVE: CASE EVENT DATE: 20161201
